FAERS Safety Report 17152387 (Version 1)
Quarter: 2019Q4

REPORT INFORMATION
  Report Type: Spontaneous
  Country: US (occurrence: US)
  Receive Date: 20191213
  Receipt Date: 20191213
  Transmission Date: 20200122
  Serious: No
  Sender: FDA-Public Use
  Company Number: US-GLAXOSMITHKLINE-US2019TSO226353

PATIENT
  Sex: Male

DRUGS (1)
  1. VARUBI [Suspect]
     Active Substance: ROLAPITANT
     Indication: PRODUCT USED FOR UNKNOWN INDICATION
     Dosage: 180 MG Q3WEEKS
     Dates: start: 20191014

REACTIONS (3)
  - Eating disorder [Unknown]
  - Malaise [Unknown]
  - Nausea [Unknown]
